FAERS Safety Report 4323678-X (Version None)
Quarter: 2004Q1

REPORT INFORMATION
  Report Type: 
  Country: None (occurrence: None)
  Receive Date: 20040323
  Receipt Date: 20040310
  Transmission Date: 20041129
  Serious: Yes (Other)
  Sender: FDA-Public Use
  Company Number: 235448

PATIENT

DRUGS (1)
  1. NORDITROPIN SIMPLEXX (SOMATROPIN)  SOLUTION FOR INJECTION, 6.7 MG/ML [Suspect]
     Indication: ILL-DEFINED DISORDER

REACTIONS (2)
  - LABORATORY TEST ABNORMAL [None]
  - NASOPHARYNGITIS [None]
